FAERS Safety Report 5415449-8 (Version None)
Quarter: 2007Q3

REPORT INFORMATION
  Report Type: 
  Country: None (occurrence: None)
  Receive Date: 20070813
  Receipt Date: 20070813
  Transmission Date: 20080115
  Serious: No
  Sender: FDA-Public Use
  Company Number: None

PATIENT
  Age: 56 Year
  Sex: Female
  Weight: 79 kg

DRUGS (1)
  1. DESMOPRESSIN ACETATE [Suspect]
     Indication: INAPPROPRIATE ANTIDIURETIC HORMONE SECRETION
     Dosage: 1 MCG   BID  SQ
     Route: 058
     Dates: start: 20070323, end: 20070326

REACTIONS (1)
  - BLOOD SODIUM DECREASED [None]
